FAERS Safety Report 19680662 (Version 3)
Quarter: 2021Q4

REPORT INFORMATION
  Report Type: Report from Study
  Country: US (occurrence: US)
  Receive Date: 20210810
  Receipt Date: 20211015
  Transmission Date: 20220303
  Serious: Yes (Other)
  Sender: FDA-Public Use
  Company Number: US-AMGEN-USASP2021119028

PATIENT
  Age: 88 Year
  Sex: Female

DRUGS (19)
  1. PROLIA [Suspect]
     Active Substance: DENOSUMAB
     Indication: Osteoporosis postmenopausal
     Dosage: 60 MILLIGRAM
     Route: 065
     Dates: start: 20210308
  2. PROLIA [Suspect]
     Active Substance: DENOSUMAB
     Indication: Osteopenia
  3. MODERNA COVID-19 VACCINE [Concomitant]
     Active Substance: CX-024414
     Dosage: UNK
     Dates: start: 20210308
  4. LUTEIN [TOCOPHERYL ACETATE;XANTOFYL;ZEAXANTHIN] [Concomitant]
     Dosage: UNK
  5. SPIRULINA [GLYCINE MAX EXTRACT;SPIRULINA SPP.] [Concomitant]
     Dosage: UNK
  6. ELM [Concomitant]
     Active Substance: ELM
     Dosage: UNK
  7. HERBALS\PLANTAGO INDICA WHOLE [Concomitant]
     Active Substance: HERBALS\PLANTAGO INDICA WHOLE
     Dosage: UNK
  8. COLON CARE [ALOE VERA;PLANTAGO PSYLLIUM;SENNA ALEXANDRINA] [Concomitant]
     Dosage: UNK
  9. FISH OIL [Concomitant]
     Active Substance: FISH OIL
     Dosage: UNK
  10. VITAMIN C [Concomitant]
     Active Substance: ASCORBIC ACID
     Dosage: UNK
  11. ZOLOFT [Concomitant]
     Active Substance: SERTRALINE HYDROCHLORIDE
     Dosage: UNK
  12. MULTI TABS 50+ [Concomitant]
     Dosage: UNK
  13. LOSARTAN [Concomitant]
     Active Substance: LOSARTAN
     Dosage: UNK
  14. ASCORBIC ACID\CRANBERRY [Concomitant]
     Active Substance: ASCORBIC ACID\CRANBERRY
     Dosage: UNK
  15. MILK THISTLE [CURCUMA LONGA;SILYBUM MARIANUM;TARAXACUM OFFICINALE] [Concomitant]
     Dosage: UNK
  16. ZINC [Concomitant]
     Active Substance: ZINC
     Dosage: UNK
  17. LEVOTHYROXINE [Concomitant]
     Active Substance: LEVOTHYROXINE
     Dosage: UNK
  18. CHOLECALCIFEROL [Concomitant]
     Active Substance: CHOLECALCIFEROL
     Dosage: UNK
  19. VITAMIN E [Concomitant]
     Active Substance: .ALPHA.-TOCOPHEROL
     Dosage: UNK

REACTIONS (5)
  - Lymphoma [Not Recovered/Not Resolved]
  - Petechiae [Not Recovered/Not Resolved]
  - Pruritus [Not Recovered/Not Resolved]
  - Bone pain [Not Recovered/Not Resolved]
  - Blood cholesterol increased [Unknown]

NARRATIVE: CASE EVENT DATE: 20210101
